FAERS Safety Report 7107699-X (Version None)
Quarter: 2010Q4

REPORT INFORMATION
  Report Type: 
  Country: None (occurrence: None)
  Receive Date: 20101117
  Receipt Date: 20101108
  Transmission Date: 20110411
  Serious: Yes (Hospitalization)
  Sender: FDA-Public Use
  Company Number: FR-JNJFOC-20100706938

PATIENT
  Sex: Male

DRUGS (1)
  1. HALDOL [Suspect]
     Indication: ILL-DEFINED DISORDER
     Route: 065

REACTIONS (4)
  - ACCIDENTAL DRUG INTAKE BY CHILD [None]
  - ALTERED STATE OF CONSCIOUSNESS [None]
  - BALANCE DISORDER [None]
  - GAIT DISTURBANCE [None]
